FAERS Safety Report 4989560-X (Version None)
Quarter: 2006Q2

REPORT INFORMATION
  Report Type: 
  Country: None (occurrence: None)
  Receive Date: 20060426
  Receipt Date: 20060411
  Transmission Date: 20061013
  Serious: Yes (Hospitalization)
  Sender: FDA-Public Use
  Company Number: US200604001923

PATIENT
  Sex: Male

DRUGS (2)
  1. CYMBALTA [Suspect]
     Indication: DIABETIC NEUROPATHY
     Dosage: 30 MG, DAILY (1/D)
     Dates: start: 20060327, end: 20060327
  2. NOVOLOG [Concomitant]

REACTIONS (6)
  - ABASIA [None]
  - DIFFICULTY IN WALKING [None]
  - FATIGUE [None]
  - HALLUCINATION [None]
  - MANIA [None]
  - NERVOUS SYSTEM DISORDER [None]
